FAERS Safety Report 4468055-6 (Version None)
Quarter: 2004Q4

REPORT INFORMATION
  Report Type: 
  Country: None (occurrence: None)
  Receive Date: 20041004
  Receipt Date: 20040920
  Transmission Date: 20050328
  Serious: Yes (Other)
  Sender: FDA-Public Use
  Company Number: 2004234824JP

PATIENT
  Age: 8 Year
  Sex: Female

DRUGS (6)
  1. DOXORUBICIN HYDROCHLORIDE [Suspect]
     Indication: PRECURSOR B-LYMPHOBLASTIC LYMPHOMA STAGE III
     Dosage: 350 MG/M2 (CUMULATIVE DOSE)
  2. CYCLOPHOSPHAMIDE [Suspect]
     Indication: PRECURSOR B-LYMPHOBLASTIC LYMPHOMA STAGE III
     Dosage: 11542 MG/M2 (CUMULATIVE DOSE)
  3. VINCRISTINE [Suspect]
     Indication: PRECURSOR B-LYMPHOBLASTIC LYMPHOMA STAGE III
     Dosage: 59 MG/M2 (CUMULATIVE DOSE)
  4. METHOTREXATE [Suspect]
     Indication: PRECURSOR B-LYMPHOBLASTIC LYMPHOMA STAGE III
     Dosage: 2622 MG/M2 (CUMULATIVE DOSE)
  5. ELSPAR [Concomitant]
  6. MERCAPTOPURINE [Concomitant]

REACTIONS (3)
  - ACUTE PROMYELOCYTIC LEUKAEMIA [None]
  - DISSEMINATED INTRAVASCULAR COAGULATION [None]
  - HAEMORRHAGIC DIATHESIS [None]
